FAERS Safety Report 23687545 (Version 1)
Quarter: 2024Q1

REPORT INFORMATION
  Report Type: Spontaneous
  Country: FR (occurrence: FR)
  Receive Date: 20240329
  Receipt Date: 20240329
  Transmission Date: 20240410
  Serious: Yes (Hospitalization)
  Sender: FDA-Public Use
  Company Number: None

PATIENT
  Age: 88 Year
  Sex: Male
  Weight: 99.8 kg

DRUGS (2)
  1. DOTAREM [Suspect]
     Active Substance: GADOTERATE MEGLUMINE
     Indication: Magnetic resonance imaging
     Route: 042
     Dates: start: 20240106, end: 20240106
  2. VISIPAQUE [Suspect]
     Active Substance: IODIXANOL
     Indication: Diagnostic procedure
     Route: 042
     Dates: start: 20240106, end: 20240106

REACTIONS (2)
  - Acute kidney injury [Recovering/Resolving]
  - Nephropathy toxic [Recovering/Resolving]

NARRATIVE: CASE EVENT DATE: 20240109
